FAERS Safety Report 19884861 (Version 1)
Quarter: 2021Q3

REPORT INFORMATION
  Report Type: Spontaneous
  Country: US (occurrence: US)
  Receive Date: 20210927
  Receipt Date: 20210927
  Transmission Date: 20211014
  Serious: Yes (Death)
  Sender: FDA-Public Use
  Company Number: None

PATIENT
  Age: 66 Year
  Sex: Male
  Weight: 93 kg

DRUGS (2)
  1. DEXAMETHASONE. [Concomitant]
     Active Substance: DEXAMETHASONE
     Dates: start: 20210921, end: 20210921
  2. TOCILIZUMAB. [Suspect]
     Active Substance: TOCILIZUMAB
     Indication: COVID-19
     Dosage: ?          OTHER FREQUENCY:ONCE;?
     Route: 042
     Dates: start: 20210921, end: 20210921

REACTIONS (9)
  - Respiratory distress [None]
  - General physical health deterioration [None]
  - Hypotension [None]
  - Blood pressure systolic decreased [None]
  - Hypoxia [None]
  - Cardiac arrest [None]
  - Unresponsive to stimuli [None]
  - Urine output decreased [None]
  - Asthenia [None]

NARRATIVE: CASE EVENT DATE: 20210921
